FAERS Safety Report 5035085-5 (Version None)
Quarter: 2006Q2

REPORT INFORMATION
  Report Type: 
  Country: None (occurrence: None)
  Receive Date: 20060627
  Receipt Date: 20060522
  Transmission Date: 20061013
  Serious: Yes (Death)
  Sender: FDA-Public Use
  Company Number: US-BRISTOL-MYERS SQUIBB COMPANY-13390240

PATIENT
  Age: 26 Year
  Sex: Female

DRUGS (1)
  1. SUSTIVA [Suspect]
     Indication: HIV INFECTION
     Dosage: INTERMITTENT THERAPY DUE TO NON-COMPLIANCE.
     Route: 048
     Dates: start: 20060208, end: 20060216

REACTIONS (2)
  - DEATH [None]
  - TREATMENT NONCOMPLIANCE [None]
